FAERS Safety Report 8777562 (Version 1)
Quarter: 2012Q4

REPORT INFORMATION
  Report Type: 
  Country: CH (occurrence: CH)
  Receive Date: 20120910
  Receipt Date: 20120910
  Transmission Date: 20130627
  Serious: Yes (Other)
  Sender: FDA-Public Use
  Company Number: CH-PFIZER INC-2012219888

PATIENT
  Sex: Male

DRUGS (1)
  1. EFEXOR ER [Suspect]
     Dosage: UNK

REACTIONS (1)
  - Psychotic disorder [Unknown]
